FAERS Safety Report 16763270 (Version 1)
Quarter: 2019Q3

REPORT INFORMATION
  Report Type: Spontaneous
  Country: GB (occurrence: GB)
  Receive Date: 20190902
  Receipt Date: 20190902
  Transmission Date: 20191005
  Serious: Yes (Other)
  Sender: FDA-Public Use
  Company Number: GB-TEVA-2019-GB-1099942

PATIENT
  Age: 76 Year

DRUGS (8)
  1. NIFEDIPINE. [Concomitant]
     Active Substance: NIFEDIPINE
     Dosage: 20 MG PER DAY
  2. NAPROXEN. [Concomitant]
     Active Substance: NAPROXEN
     Dosage: 250MG-500MG.
  3. ATORVASTATIN [Concomitant]
     Active Substance: ATORVASTATIN
     Dosage: 20 MG PER DAY
  4. LANSOPRAZOLE. [Suspect]
     Active Substance: LANSOPRAZOLE
     Dosage: 15 MG PER DAY
  5. MIRABEGRON [Concomitant]
     Active Substance: MIRABEGRON
     Dosage: 50 MG PER DAY
  6. BENDROFLUMETHIAZIDE [Suspect]
     Active Substance: BENDROFLUMETHIAZIDE
     Dosage: 2.5 MG PER DAY
  7. BISOPROLOL [Concomitant]
     Active Substance: BISOPROLOL
     Dosage: 5 MG PER DAY
  8. APIXABAN [Concomitant]
     Active Substance: APIXABAN
     Dosage: 10 MG PER DAY

REACTIONS (1)
  - Hyponatraemia [Recovered/Resolved with Sequelae]
